FAERS Safety Report 9718077 (Version 1)
Quarter: 2013Q4

REPORT INFORMATION
  Report Type: Spontaneous
  Country: US (occurrence: US)
  Receive Date: 20131125
  Receipt Date: 20131125
  Transmission Date: 20140711
  Serious: No
  Sender: FDA-Public Use
  Company Number: US-VIVUS-2013V1000510

PATIENT
  Age: 41 Year
  Sex: Female
  Weight: 83.54 kg

DRUGS (5)
  1. QSYMIA 7.5MG/46MG [Suspect]
     Indication: WEIGHT DECREASED
     Route: 048
     Dates: start: 201306
  2. QSYMIA 3.75MG/23MG [Suspect]
     Indication: WEIGHT DECREASED
     Route: 048
     Dates: start: 201306, end: 201306
  3. VIORELE [Concomitant]
     Indication: HORMONE LEVEL ABNORMAL
     Route: 048
     Dates: start: 2012
  4. FLONASE [Concomitant]
     Indication: HYPERSENSITIVITY
     Route: 045
  5. UNSPECIFIED OVER THE COUNTER ACID REDUCER [Concomitant]
     Indication: GASTROOESOPHAGEAL REFLUX DISEASE

REACTIONS (6)
  - Dissociation [Not Recovered/Not Resolved]
  - Feeling of relaxation [Not Recovered/Not Resolved]
  - Amnesia [Not Recovered/Not Resolved]
  - Confusional state [Not Recovered/Not Resolved]
  - Disturbance in attention [Not Recovered/Not Resolved]
  - Feeling abnormal [Not Recovered/Not Resolved]
